FAERS Safety Report 22315861 (Version 1)
Quarter: 2023Q2

REPORT INFORMATION
  Report Type: Other
  Country: US (occurrence: None)
  Receive Date: 20230512
  Receipt Date: 20230512
  Transmission Date: 20230721
  Serious: Yes (Hospitalization, Other)
  Sender: FDA-Public Use
  Company Number: US-ROCHE-3346684

PATIENT
  Age: 66 Year
  Sex: Female
  Weight: 59.020 kg

DRUGS (3)
  1. OCREVUS [Suspect]
     Active Substance: OCRELIZUMAB
     Indication: Primary progressive multiple sclerosis
     Dosage: YES
     Route: 042
  2. TRILEPTAL [Concomitant]
     Active Substance: OXCARBAZEPINE
  3. VANCOMYCIN [Concomitant]
     Active Substance: VANCOMYCIN

REACTIONS (5)
  - Abscess [Unknown]
  - Urinary tract infection [Recovered/Resolved]
  - Decubitus ulcer [Not Recovered/Not Resolved]
  - Pyrexia [Unknown]
  - Staphylococcus test positive [Unknown]

NARRATIVE: CASE EVENT DATE: 20220101
